FAERS Safety Report 7068015-5 (Version None)
Quarter: 2010Q4

REPORT INFORMATION
  Report Type: 
  Country: None (occurrence: None)
  Receive Date: 20101027
  Receipt Date: 20101027
  Transmission Date: 20110411
  Serious: No
  Sender: FDA-Public Use
  Company Number: None

PATIENT
  Age: 77 Year
  Sex: Female
  Weight: 57.1532 kg

DRUGS (1)
  1. CYMBALTA [Suspect]
     Indication: DEPRESSION
     Dosage: ONE TABLET DAILY FOR ONE WEEK PO
     Route: 048
     Dates: start: 20100427, end: 20100810

REACTIONS (5)
  - DIARRHOEA [None]
  - EUPHORIC MOOD [None]
  - INFLUENZA [None]
  - INTESTINAL OBSTRUCTION [None]
  - VOMITING [None]
